FAERS Safety Report 6493596-X (Version None)
Quarter: 2009Q4

REPORT INFORMATION
  Report Type: 
  Country: None (occurrence: None)
  Receive Date: 20091214
  Receipt Date: 20091208
  Transmission Date: 20100525
  Serious: Yes (Disabling)
  Sender: FDA-Public Use
  Company Number: A0817602A

PATIENT
  Sex: Female

DRUGS (1)
  1. ADVAIR DISKUS 100/50 [Suspect]
     Indication: COUGH
     Dosage: 1PUFF TWICE PER DAY
     Route: 055
     Dates: start: 20030601, end: 20030801

REACTIONS (6)
  - CARPAL TUNNEL SYNDROME [None]
  - HYPOAESTHESIA [None]
  - MOVEMENT DISORDER [None]
  - OVERDOSE [None]
  - PARAESTHESIA [None]
  - SENSORY LOSS [None]
